FAERS Safety Report 9994809 (Version 1)
Quarter: 2014Q1

REPORT INFORMATION
  Report Type: Spontaneous
  Country: US (occurrence: None)
  Receive Date: 20140307
  Receipt Date: 20140307
  Transmission Date: 20141002
  Serious: Yes (Disabling)
  Sender: FDA-Public Use
  Company Number: None

PATIENT
  Age: 60 Year
  Sex: Female
  Weight: 61.24 kg

DRUGS (1)
  1. CIPROFLOXACIN HCL [Suspect]
     Indication: INFECTED DERMAL CYST
     Route: 048
     Dates: start: 20140224, end: 20140228

REACTIONS (3)
  - Gait disturbance [None]
  - Tendon pain [None]
  - Skin discolouration [None]
